FAERS Safety Report 9001923 (Version 1)
Quarter: 2013Q1

REPORT INFORMATION
  Report Type: Report from Study
  Country: DE (occurrence: DE)
  Receive Date: 20130107
  Receipt Date: 20130107
  Transmission Date: 20140127
  Serious: Yes (Death, Life-Threatening)
  Sender: FDA-Public Use
  Company Number: DE-ROCHE-1176128

PATIENT
  Age: 70 Year
  Sex: Male

DRUGS (3)
  1. ALTEPLASE [Suspect]
     Indication: ACUTE MYOCARDIAL INFARCTION
     Route: 042
     Dates: start: 19940627, end: 19940627
  2. HIRUDIN [Suspect]
     Indication: ACUTE MYOCARDIAL INFARCTION
     Route: 042
     Dates: start: 19940627, end: 19940627
  3. ASA [Concomitant]

REACTIONS (11)
  - Cardiac failure congestive [Fatal]
  - Cardiac arrest [Unknown]
  - Bradycardia [Unknown]
  - Ventricular fibrillation [Unknown]
  - Haemoptysis [Unknown]
  - Haematemesis [Unknown]
  - Mouth haemorrhage [Unknown]
  - Epistaxis [Unknown]
  - Somnolence [Unknown]
  - Hypercapnia [Unknown]
  - Gastrointestinal haemorrhage [Unknown]
